FAERS Safety Report 15143507 (Version 1)
Quarter: 2018Q3

REPORT INFORMATION
  Report Type: Spontaneous
  Country: SK (occurrence: SK)
  Receive Date: 20180713
  Receipt Date: 20180713
  Transmission Date: 20181010
  Serious: Yes (Hospitalization)
  Sender: FDA-Public Use
  Company Number: SK-JNJFOC-20180713953

PATIENT
  Age: 85 Year
  Sex: Female

DRUGS (6)
  1. FURON [Concomitant]
     Active Substance: FUROSEMIDE
     Route: 048
  2. XARELTO [Suspect]
     Active Substance: RIVAROXABAN
     Indication: PRODUCT USED FOR UNKNOWN INDICATION
     Route: 048
  3. ATROVENT [Concomitant]
     Active Substance: IPRATROPIUM BROMIDE
     Route: 055
  4. DETRALEX [Concomitant]
     Active Substance: DIOSMIN\HESPERIDIN
     Route: 048
  5. EPLERENONE. [Concomitant]
     Active Substance: EPLERENONE
     Route: 048
  6. NEBILET [Concomitant]
     Active Substance: NEBIVOLOL
     Route: 048

REACTIONS (2)
  - Hypocoagulable state [Recovered/Resolved]
  - Anaemia [Recovered/Resolved]
